FAERS Safety Report 18912822 (Version 2)
Quarter: 2024Q2

REPORT INFORMATION
  Report Type: Other
  Country: US (occurrence: None)
  Receive Date: 20210219
  Receipt Date: 20240524
  Transmission Date: 20240716
  Serious: Yes (Death, Other)
  Sender: FDA-Public Use
  Company Number: US-ROCHE-2767411

PATIENT

DRUGS (2)
  1. TOCILIZUMAB [Suspect]
     Active Substance: TOCILIZUMAB
     Indication: COVID-19 pneumonia
     Route: 065
  2. TOCILIZUMAB [Suspect]
     Active Substance: TOCILIZUMAB
     Indication: Acute respiratory failure

REACTIONS (7)
  - Haematological infection [Fatal]
  - Staphylococcal infection [Unknown]
  - Enterococcal infection [Unknown]
  - Enterobacter infection [Unknown]
  - Streptococcal infection [Unknown]
  - Candida infection [Unknown]
  - Off label use [Fatal]
